FAERS Safety Report 7040890-X (Version None)
Quarter: 2010Q4

REPORT INFORMATION
  Report Type: 
  Country: None (occurrence: None)
  Receive Date: 20101013
  Receipt Date: 20101004
  Transmission Date: 20110411
  Serious: No
  Sender: FDA-Public Use
  Company Number: US-JNJFOC-20101001238

PATIENT
  Sex: Female
  Weight: 124.74 kg

DRUGS (4)
  1. DURAGESIC-100 [Suspect]
     Indication: PAIN
     Dosage: NDC:50458-0093-05
     Route: 062
  2. OXYCODONE HCL [Concomitant]
     Indication: PAIN
     Route: 048
  3. PROZAC [Concomitant]
     Indication: ANGER
     Route: 048
  4. PROZAC [Concomitant]
     Indication: ANXIETY
     Route: 048

REACTIONS (4)
  - BLOOD PRESSURE INCREASED [None]
  - PRODUCT ADHESION ISSUE [None]
  - PRODUCT PACKAGING QUANTITY ISSUE [None]
  - WRONG TECHNIQUE IN DRUG USAGE PROCESS [None]
